FAERS Safety Report 6959325-8 (Version None)
Quarter: 2010Q3

REPORT INFORMATION
  Report Type: 
  Country: None (occurrence: None)
  Receive Date: 20100831
  Receipt Date: 20100719
  Transmission Date: 20110219
  Serious: Yes (Death, Other)
  Sender: FDA-Public Use
  Company Number: PHEH2009US14598

PATIENT
  Sex: Male

DRUGS (3)
  1. RITALIN [Suspect]
     Indication: ATTENTION DEFICIT/HYPERACTIVITY DISORDER
     Dosage: UNK, UNK
     Dates: start: 19980929
  2. CONCERTA [Suspect]
     Dosage: UNK, UNK
     Dates: start: 20001020
  3. NUTROPIN [Concomitant]

REACTIONS (14)
  - ANXIETY [None]
  - CAFE AU LAIT SPOTS [None]
  - CENTRAL NERVOUS SYSTEM LESION [None]
  - DEATH [None]
  - DRUG TOXICITY [None]
  - HEAD DISCOMFORT [None]
  - MALAISE [None]
  - NAUSEA [None]
  - PAIN [None]
  - PECTUS EXCAVATUM [None]
  - PULMONARY OEDEMA [None]
  - UNRESPONSIVE TO STIMULI [None]
  - VENTRICULAR FIBRILLATION [None]
  - VOMITING [None]
